FAERS Safety Report 8771659 (Version 1)
Quarter: 2012Q4

REPORT INFORMATION
  Report Type: 
  Country: US (occurrence: US)
  Receive Date: 20120906
  Receipt Date: 20120906
  Transmission Date: 20130627
  Serious: No
  Sender: FDA-Public Use
  Company Number: US-B.I. PHARMACEUTICALS,INC./RIDGEFIELD-2012-BP-21307BP

PATIENT
  Age: 86 Year
  Sex: Female
  Weight: 73 kg

DRUGS (8)
  1. PRADAXA [Suspect]
     Indication: ATRIAL FIBRILLATION
     Dosage: 300 mg
     Route: 048
     Dates: end: 20120618
  2. PRADAXA [Suspect]
     Dosage: 300 mg
     Route: 048
     Dates: start: 20120626, end: 20120830
  3. PROTONIX [Concomitant]
     Dosage: 80 mg
     Route: 048
  4. RYTHMOL [Concomitant]
     Dosage: 300 mg
     Route: 048
  5. METOPROLOL [Concomitant]
     Dosage: 50 mg
     Route: 048
  6. MULTIVITAMIN [Concomitant]
     Route: 048
  7. CALCIUM [Concomitant]
     Route: 048
  8. ASPIRIN [Concomitant]
     Dosage: 81 mg
     Route: 048

REACTIONS (6)
  - Contusion [Not Recovered/Not Resolved]
  - Injury [Recovered/Resolved]
  - Contusion [Recovered/Resolved]
  - Wound [Recovered/Resolved]
  - Atrial fibrillation [Recovered/Resolved]
  - Dizziness [Recovered/Resolved]
